FAERS Safety Report 9467932 (Version 1)
Quarter: 2013Q3

REPORT INFORMATION
  Report Type: Spontaneous
  Country: US (occurrence: US)
  Receive Date: 20130821
  Receipt Date: 20130821
  Transmission Date: 20140515
  Serious: Yes (Other)
  Sender: FDA-Public Use
  Company Number: US-PFIZER INC-2013240886

PATIENT
  Age: 57 Year
  Sex: Female
  Weight: 61.2 kg

DRUGS (1)
  1. XANAX [Suspect]
     Indication: ANXIETY
     Dosage: 1 MG, 4X/DAY
     Route: 048

REACTIONS (3)
  - Cardiac disorder [Unknown]
  - Chest pain [Unknown]
  - Hypertension [Unknown]
